FAERS Safety Report 9224915 (Version 1)
Quarter: 2013Q1

REPORT INFORMATION
  Report Type: Spontaneous
  Country: US (occurrence: None)
  Receive Date: 20120914
  Receipt Date: 20120914
  Transmission Date: 20140127
  Serious: Yes (Hospitalization)
  Sender: FDA-Public Use
  Company Number: JPI-P-018363

PATIENT
  Age: 45 Year
  Sex: Female

DRUGS (8)
  1. XYREM(500 MILLIGRAM/MILLILITERS, SOLUTION)(SODIUM OXYBATE) [Suspect]
     Indication: NARCOLEPSY
     Route: 048
     Dates: start: 200507
  2. XYREM(500 MILLIGRAM/MILLILITERS, SOLUTION)(SODIUM OXYBATE) [Suspect]
     Indication: SLEEP DISORDER
     Route: 048
     Dates: start: 200507
  3. UNSPECIFIED ANTIBIOTIC [Suspect]
     Indication: DIARRHOEA
     Dates: start: 20111008, end: 20111029
  4. THYROID HORMONES [Concomitant]
  5. CLONAZEPAM [Concomitant]
  6. CARVEDILOL [Concomitant]
  7. TOPIRAMATE [Concomitant]
  8. MELATONIN [Concomitant]

REACTIONS (5)
  - Diarrhoea [None]
  - Depression [None]
  - Condition aggravated [None]
  - Headache [None]
  - Initial insomnia [None]
